FAERS Safety Report 16972542 (Version 2)
Quarter: 2019Q4

REPORT INFORMATION
  Report Type: Report from Study
  Country: None (occurrence: CO)
  Receive Date: 20191030
  Receipt Date: 20191119
  Transmission Date: 20200122
  Serious: Yes (Other)
  Sender: FDA-Public Use
  Company Number: CO-ABBVIE-19K-036-2931978-00

PATIENT
  Age: 54 Year
  Sex: Male
  Weight: 69 kg

DRUGS (3)
  1. LYRICA [Suspect]
     Active Substance: PREGABALIN
     Indication: PAIN
     Route: 048
     Dates: start: 201907, end: 201908
  2. TAPENTADOL [Suspect]
     Active Substance: TAPENTADOL
     Indication: PAIN
     Route: 048
     Dates: start: 201907, end: 201907
  3. HUMIRA [Suspect]
     Active Substance: ADALIMUMAB
     Indication: ANKYLOSING SPONDYLITIS
     Route: 058
     Dates: start: 20190111, end: 20190913

REACTIONS (22)
  - Somnolence [Not Recovered/Not Resolved]
  - Chronic gastritis [Unknown]
  - Dyspepsia [Unknown]
  - Speech disorder [Unknown]
  - Haemorrhagic disorder [Unknown]
  - Mobility decreased [Not Recovered/Not Resolved]
  - Discomfort [Unknown]
  - Sacroiliitis [Unknown]
  - Bone erosion [Unknown]
  - Irritable bowel syndrome [Unknown]
  - Foreign body in respiratory tract [Unknown]
  - Arthralgia [Not Recovered/Not Resolved]
  - Metaplasia [Unknown]
  - Loss of personal independence in daily activities [Not Recovered/Not Resolved]
  - Dizziness [Not Recovered/Not Resolved]
  - Uveitis [Unknown]
  - Asthenia [Not Recovered/Not Resolved]
  - Muscle spasms [Unknown]
  - Spinal pain [Not Recovered/Not Resolved]
  - Intestinal transit time decreased [Unknown]
  - Headache [Not Recovered/Not Resolved]
  - Ankylosing spondylitis [Not Recovered/Not Resolved]

NARRATIVE: CASE EVENT DATE: 2019
